FAERS Safety Report 6014586-7 (Version None)
Quarter: 2008Q4

REPORT INFORMATION
  Report Type: 
  Country: None (occurrence: None)
  Receive Date: 20081219
  Receipt Date: 20080903
  Transmission Date: 20090506
  Serious: No
  Sender: FDA-Public Use
  Company Number: A0745674A

PATIENT
  Age: 61 Year
  Sex: Male

DRUGS (4)
  1. AVODART [Suspect]
     Indication: BENIGN PROSTATIC HYPERPLASIA
     Dosage: .5MG PER DAY
     Route: 048
     Dates: start: 20080501, end: 20080801
  2. TERAZOSIN HCL [Concomitant]
  3. VYTORIN [Concomitant]
  4. UNKNOWN MEDICATION [Concomitant]

REACTIONS (1)
  - LOSS OF LIBIDO [None]
